FAERS Safety Report 7886173-7 (Version None)
Quarter: 2011Q4

REPORT INFORMATION
  Report Type: 
  Country: None (occurrence: None)
  Receive Date: 20111102
  Receipt Date: 20110624
  Transmission Date: 20120403
  Serious: No
  Sender: FDA-Public Use
  Company Number: US-AMGEN-USASP2011032614

PATIENT
  Sex: Male

DRUGS (3)
  1. ENBREL [Suspect]
     Indication: PSORIASIS
  2. METHOTREXATE [Concomitant]
     Dosage: 6 MG, QWK
     Dates: start: 20101201
  3. ENBREL [Suspect]
     Indication: PSORIATIC ARTHROPATHY
     Dosage: 50 MG, 2 TIMES/WK
     Dates: start: 20090401, end: 20100601

REACTIONS (4)
  - PAIN IN EXTREMITY [None]
  - JOINT SWELLING [None]
  - ARTHRALGIA [None]
  - OEDEMA PERIPHERAL [None]
